FAERS Safety Report 4572044-0 (Version None)
Quarter: 2005Q1

REPORT INFORMATION
  Report Type: 
  Country: None (occurrence: None)
  Receive Date: 20050202
  Receipt Date: 20050202
  Transmission Date: 20050727
  Serious: No
  Sender: FDA-Public Use
  Company Number: None

PATIENT
  Sex: Female

DRUGS (2)
  1. CRYSELLE [Suspect]
     Indication: ENDOMETRIOSIS
     Dosage: 1 TAB PO QD
     Route: 048
     Dates: start: 20041230
  2. ZITHROMAX [Concomitant]

REACTIONS (4)
  - BREAST DISCHARGE [None]
  - BREAST DISORDER FEMALE [None]
  - MENSTRUATION IRREGULAR [None]
  - PHARMACEUTICAL PRODUCT COMPLAINT [None]
